FAERS Safety Report 7082757-7 (Version None)
Quarter: 2010Q4

REPORT INFORMATION
  Report Type: 
  Country: None (occurrence: None)
  Receive Date: 20101001
  Receipt Date: 20100623
  Transmission Date: 20110411
  Serious: No
  Sender: FDA-Public Use
  Company Number: 1000014684

PATIENT
  Sex: Female

DRUGS (6)
  1. BYSTOLIC [Suspect]
     Indication: HYPERTENSION
     Dosage: 5 MG (5 MG,1 IN 1 D),ORAL ; 10 MG (10 MG,1 IN 1 D),ORAL
     Route: 048
     Dates: start: 20100610, end: 20100617
  2. BYSTOLIC [Suspect]
     Indication: HYPERTENSION
     Dosage: 5 MG (5 MG,1 IN 1 D),ORAL ; 10 MG (10 MG,1 IN 1 D),ORAL
     Route: 048
     Dates: start: 20100618
  3. LIPITOR [Concomitant]
  4. LOVAZA [Concomitant]
  5. LEVOTHYROXINE (TABLETS) [Concomitant]
  6. BIRTH CONTROL PILL (NOS) [Concomitant]

REACTIONS (1)
  - DRUG INEFFECTIVE [None]
